FAERS Safety Report 8746127 (Version 5)
Quarter: 2013Q2

REPORT INFORMATION
  Report Type: Spontaneous
  Country: US (occurrence: US)
  Receive Date: 20120827
  Receipt Date: 20130403
  Transmission Date: 20140414
  Serious: Yes (Death, Hospitalization)
  Sender: FDA-Public Use
  Company Number: PHEH2012US016477

PATIENT
  Age: 81 Year
  Sex: Female

DRUGS (1)
  1. GLEEVEC [Suspect]
     Indication: CHRONIC MYELOID LEUKAEMIA
     Dosage: 100 MG, 2 DF ONCE DAILY
     Route: 048

REACTIONS (3)
  - Colon cancer stage IV [Fatal]
  - Lower limb fracture [Unknown]
  - Asthenia [Unknown]
